FAERS Safety Report 8315630-4 (Version None)
Quarter: 2012Q2

REPORT INFORMATION
  Report Type: 
  Country: None (occurrence: None)
  Receive Date: 20120426
  Receipt Date: 20120419
  Transmission Date: 20120825
  Serious: Yes (Death)
  Sender: FDA-Public Use
  Company Number: CA-ROCHE-1061155

PATIENT
  Age: 79 Year
  Sex: Male
  Weight: 74 kg

DRUGS (9)
  1. ELOXATIN [Suspect]
     Indication: PRODUCT USED FOR UNKNOWN INDICATION
     Route: 042
  2. ALTACE [Concomitant]
     Route: 065
  3. INNOHEP [Concomitant]
     Dosage: LIQUID
     Route: 058
  4. LOPRESSOR [Concomitant]
     Route: 065
  5. PANTOPRAZOLE SODIUM [Concomitant]
     Route: 065
  6. ALLOPURINOL [Concomitant]
     Route: 065
  7. GEMCITABINE [Suspect]
     Indication: PRODUCT USED FOR UNKNOWN INDICATION
     Route: 042
  8. LASIX [Concomitant]
     Route: 065
  9. RITUXAN [Suspect]
     Indication: PRODUCT USED FOR UNKNOWN INDICATION
     Route: 042

REACTIONS (4)
  - PAIN [None]
  - CARDIAC FAILURE [None]
  - MYOCARDIAL INFARCTION [None]
  - CARDIOGENIC SHOCK [None]
